FAERS Safety Report 7064723-0 (Version None)
Quarter: 2010Q4

REPORT INFORMATION
  Report Type: 
  Country: None (occurrence: None)
  Receive Date: 20101022
  Receipt Date: 20101022
  Transmission Date: 20110411
  Serious: Yes (Life-Threatening)
  Sender: FDA-Public Use
  Company Number: None

PATIENT

DRUGS (4)
  1. KUSH ^HERBAL INCENSE^ - STREET DRUG ALTERNATIVE [Suspect]
     Dosage: 1.5 GRAMS - 2-3 1.5G BAGS
     Dates: start: 20100901, end: 20100911
  2. K2 [Suspect]
  3. K3 SUPREME 1GM [Suspect]
  4. VOODOO 1G [Suspect]

REACTIONS (5)
  - ANGER [None]
  - CONVULSION [None]
  - HEADACHE [None]
  - LOSS OF CONSCIOUSNESS [None]
  - MOOD SWINGS [None]
